FAERS Safety Report 14039314 (Version 6)
Quarter: 2019Q3

REPORT INFORMATION
  Report Type: Spontaneous
  Country: GB (occurrence: GB)
  Receive Date: 20171004
  Receipt Date: 20190918
  Transmission Date: 20191004
  Serious: Yes (Death, Hospitalization, Other)
  Sender: FDA-Public Use
  Company Number: GB-MYLANLABS-2017M1060818

PATIENT
  Sex: Male

DRUGS (8)
  1. ZAMADOL 24HR 300 MG PROLONGED RELEASE TABLETS [Suspect]
     Active Substance: TRAMADOL
     Dosage: UNK
  2. PREGABALIN. [Concomitant]
     Active Substance: PREGABALIN
     Indication: PRODUCT USED FOR UNKNOWN INDICATION
     Dosage: 2100 MG, TOTAL
     Route: 048
     Dates: start: 2016, end: 2016
  3. LANSOPRAZOLE. [Concomitant]
     Active Substance: LANSOPRAZOLE
     Indication: PRODUCT USED FOR UNKNOWN INDICATION
     Dosage: UNK
     Route: 048
     Dates: end: 2016
  4. TRAMADOL. [Suspect]
     Active Substance: TRAMADOL
     Dosage: 300 MG, UNK
     Route: 048
  5. ZAMADOL 24HR 300 MG PROLONGED RELEASE TABLETS [Suspect]
     Active Substance: TRAMADOL
     Indication: PAIN
     Dosage: 1500 MG, ONCE
     Route: 048
     Dates: start: 2016, end: 2016
  6. TRAMADOL. [Suspect]
     Active Substance: TRAMADOL
     Dosage: UNK
     Route: 048
     Dates: start: 2016, end: 2016
  7. TRAMADOL. [Suspect]
     Active Substance: TRAMADOL
     Indication: PAIN
     Dosage: UNK
     Route: 065
     Dates: start: 2015, end: 2016
  8. MIRTAZAPINE. [Concomitant]
     Active Substance: MIRTAZAPINE
     Indication: DEPRESSION
     Dosage: 45 MG, 1/DAY
     Route: 048
     Dates: end: 2016

REACTIONS (16)
  - Slow speech [Unknown]
  - Seizure [Not Recovered/Not Resolved]
  - Toxicity to various agents [Fatal]
  - Diarrhoea [Unknown]
  - Intentional overdose [Unknown]
  - Prescription drug used without a prescription [Unknown]
  - Myocardial infarction [Fatal]
  - Fatigue [Unknown]
  - Loss of consciousness [Not Recovered/Not Resolved]
  - Malaise [Unknown]
  - Circulatory collapse [Unknown]
  - Drug abuse [Fatal]
  - Heart rate irregular [Not Recovered/Not Resolved]
  - Somnolence [Unknown]
  - Nervousness [Unknown]
  - Pallor [Unknown]

NARRATIVE: CASE EVENT DATE: 2015
